FAERS Safety Report 13893547 (Version 1)
Quarter: 2017Q3

REPORT INFORMATION
  Report Type: Spontaneous
  Country: GB (occurrence: GB)
  Receive Date: 20170822
  Receipt Date: 20170822
  Transmission Date: 20171127
  Serious: Yes (Hospitalization)
  Sender: FDA-Public Use
  Company Number: GB-TEVA-797538ACC

PATIENT
  Age: 93 Year
  Sex: Female
  Weight: 50.3 kg

DRUGS (4)
  1. FERROUS FUMARATE [Concomitant]
     Active Substance: FERROUS FUMARATE
  2. PARACETAMOL [Concomitant]
     Active Substance: ACETAMINOPHEN
  3. AMLODIPINE [Suspect]
     Active Substance: AMLODIPINE BESYLATE
     Indication: HYPERTENSION
     Dosage: 10 MILLIGRAM DAILY;
     Route: 048
     Dates: end: 20170729
  4. QUININE SULFATE. [Concomitant]
     Active Substance: QUININE SULFATE

REACTIONS (1)
  - Fall [Recovered/Resolved]

NARRATIVE: CASE EVENT DATE: 20170729
